FAERS Safety Report 5897037-2 (Version None)
Quarter: 2008Q3

REPORT INFORMATION
  Report Type: 
  Country: None (occurrence: None)
  Receive Date: 20080923
  Receipt Date: 20080910
  Transmission Date: 20090109
  Serious: Yes (Other)
  Sender: FDA-Public Use
  Company Number: SPV1-2008-01971

PATIENT
  Age: 9 Year
  Sex: Male

DRUGS (5)
  1. ELAPRASE [Suspect]
     Indication: MUCOPOLYSACCHARIDOSIS II
     Dosage: 12 MG, 1X/WEEK, IV DRIP
     Route: 041
     Dates: start: 20061206
  2. LISINOPRIL [Concomitant]
  3. ADVAIR DISKUS 100/50 [Concomitant]
  4. ALBUTEROL /00139501/ (SALBUTAMOL) [Concomitant]
  5. SINGULAIR  /01362601/ (MONTELUKAST) [Concomitant]

REACTIONS (1)
  - CONVULSION [None]
